FAERS Safety Report 5521687-6 (Version None)
Quarter: 2007Q4

REPORT INFORMATION
  Report Type: 
  Country: None (occurrence: None)
  Receive Date: 20071120
  Receipt Date: 20071115
  Transmission Date: 20080405
  Serious: Yes (Death, Hospitalization)
  Sender: FDA-Public Use
  Company Number: PHEH2007US11963

PATIENT
  Age: 70 Year
  Sex: Female

DRUGS (1)
  1. FORADIL [Suspect]
     Indication: CHRONIC OBSTRUCTIVE PULMONARY DISEASE
     Dosage: UNK, BID
     Dates: end: 20070125

REACTIONS (3)
  - DEATH [None]
  - NERVOUSNESS [None]
  - TACHYCARDIA [None]
